FAERS Safety Report 13194069 (Version 2)
Quarter: 2018Q2

REPORT INFORMATION
  Report Type: Report from Study
  Country: None (occurrence: AT)
  Receive Date: 20170207
  Receipt Date: 20180404
  Transmission Date: 20180711
  Serious: Yes (Death, Hospitalization)
  Sender: FDA-Public Use
  Company Number: AT-ABBVIE-17P-009-1864003-00

PATIENT
  Age: 59 Year
  Sex: Female

DRUGS (1)
  1. DUODOPA [Suspect]
     Active Substance: CARBIDOPA\LEVODOPA
     Indication: PARKINSON^S DISEASE
     Dosage: MD: 5.5ML, CR DAYTIME: 2.9ML/H, CR NIGHTTIME: 2.9ML/H, ED: 1.3ML
     Route: 050

REACTIONS (2)
  - Laryngeal cancer [Fatal]
  - Respiratory distress [Recovering/Resolving]

NARRATIVE: CASE EVENT DATE: 20170130
